FAERS Safety Report 6736632-5 (Version None)
Quarter: 2010Q2

REPORT INFORMATION
  Report Type: 
  Country: None (occurrence: None)
  Receive Date: 20100520
  Receipt Date: 20100520
  Transmission Date: 20101027
  Serious: Yes (Hospitalization)
  Sender: FDA-Public Use
  Company Number: None

PATIENT
  Sex: Female
  Weight: 108.1 kg

DRUGS (2)
  1. CYCLOPHOSPHAMIDE [Suspect]
     Dosage: 1250 MG
     Dates: end: 20090902
  2. DOXORUBICIN HCL [Suspect]
     Dosage: 125 MG
     Dates: end: 20090902

REACTIONS (1)
  - EJECTION FRACTION DECREASED [None]
